FAERS Safety Report 12444095 (Version 1)
Quarter: 2016Q2

REPORT INFORMATION
  Report Type: Spontaneous
  Country: US (occurrence: US)
  Receive Date: 20160607
  Receipt Date: 20160607
  Transmission Date: 20160815
  Serious: No
  Sender: FDA-Public Use
  Company Number: US-SA-2016SA086262

PATIENT
  Age: 40 Year
  Sex: Male

DRUGS (2)
  1. TOUJEO [Suspect]
     Active Substance: INSULIN GLARGINE
     Indication: DIABETES MELLITUS MANAGEMENT
     Dosage: DOSE:30 UNIT(S)
     Route: 058
     Dates: start: 20160322, end: 201604
  2. SOLOSTAR [Concomitant]
     Active Substance: DEVICE
     Indication: DIABETES MELLITUS MANAGEMENT
     Dates: start: 20160322, end: 20160415

REACTIONS (1)
  - Hypersensitivity [Recovered/Resolved]
